FAERS Safety Report 9695613 (Version 1)
Quarter: 2013Q4

REPORT INFORMATION
  Report Type: Spontaneous
  Country: US (occurrence: US)
  Receive Date: 20131119
  Receipt Date: 20131119
  Transmission Date: 20140711
  Serious: Yes (Other)
  Sender: FDA-Public Use
  Company Number: US-AMGEN-USASP2013080956

PATIENT
  Sex: Female

DRUGS (3)
  1. XGEVA [Suspect]
     Indication: PRODUCT USED FOR UNKNOWN INDICATION
     Dosage: UNK UNK, Q6MO
     Route: 065
  2. LUPRON [Suspect]
     Dosage: UNK
     Dates: start: 201310
  3. FEMARA [Concomitant]

REACTIONS (9)
  - Oophorectomy bilateral [Unknown]
  - Influenza like illness [Unknown]
  - Ear pain [Unknown]
  - Stomatitis [Unknown]
  - Oropharyngeal pain [Unknown]
  - Emotional disorder [Unknown]
  - Menopausal symptoms [Unknown]
  - Dysgeusia [Unknown]
  - Inappropriate schedule of drug administration [Unknown]
